FAERS Safety Report 14246576 (Version 1)
Quarter: 2017Q4

REPORT INFORMATION
  Report Type: Spontaneous
  Country: US (occurrence: US)
  Receive Date: 20171201
  Receipt Date: 20171201
  Transmission Date: 20180321
  Serious: No
  Sender: FDA-Public Use
  Company Number: None

PATIENT
  Age: 57 Year
  Sex: Male
  Weight: 112.5 kg

DRUGS (1)
  1. TOUJEO [Suspect]
     Active Substance: INSULIN GLARGINE
     Indication: INSULIN RESISTANT DIABETES
     Route: 058
     Dates: start: 20170803, end: 20171031

REACTIONS (3)
  - Papule [None]
  - Therapy change [None]
  - Pruritus [None]

NARRATIVE: CASE EVENT DATE: 20171102
